FAERS Safety Report 9448651 (Version 1)
Quarter: 2013Q3

REPORT INFORMATION
  Report Type: Report from Study
  Country: US (occurrence: US)
  Receive Date: 20130808
  Receipt Date: 20130808
  Transmission Date: 20140515
  Serious: Yes (Other)
  Sender: FDA-Public Use
  Company Number: US-UCBSA-052159

PATIENT
  Age: 28 Year
  Sex: Female
  Weight: 69.4 kg

DRUGS (20)
  1. KEPPRA [Suspect]
     Indication: EPILEPSY
     Route: 048
     Dates: start: 20120203
  2. KEPPRA [Suspect]
     Indication: EPILEPSY
     Route: 048
     Dates: start: 20120128, end: 2012
  3. FERROUS SULPHATE [Concomitant]
     Indication: ANAEMIA
     Dosage: DAILY DOSE: 325 MG
     Route: 048
     Dates: start: 20111118, end: 20120628
  4. PRENATAL VITAMIN W/ FE-METHYLFOL-FA [Concomitant]
     Indication: PREGNANCY
     Dosage: 1 TABLET
     Route: 048
     Dates: start: 20110916
  5. FOLIC ACID [Concomitant]
     Indication: PRENATAL CARE
     Route: 048
     Dates: start: 20120203
  6. METOCLOPRAMIDE [Concomitant]
     Indication: MIGRAINE
     Dosage: 10 MG
     Route: 048
     Dates: start: 20120203
  7. TYLENOL [Concomitant]
     Dosage: 325 MG (2 TABLETS)
     Route: 048
  8. TDAP INJECTION [Concomitant]
     Indication: IMMUNISATION
     Dosage: 0.5 ML ONCE
     Route: 030
     Dates: start: 20110916, end: 20110916
  9. CARBAMAZEPINE [Concomitant]
     Indication: EPILEPSY
  10. CLONAZEPAM [Concomitant]
     Indication: EPILEPSY
  11. CLOZAPINE [Concomitant]
     Indication: EPILEPSY
  12. DIAZEPAM [Concomitant]
     Indication: EPILEPSY
  13. GABAPENTIN [Concomitant]
     Indication: EPILEPSY
  14. LAMOTRIGINE [Concomitant]
     Indication: EPILEPSY
  15. OXCARBAZEPINE [Concomitant]
     Indication: EPILEPSY
  16. PHENOBARBITOL [Concomitant]
     Indication: EPILEPSY
  17. PHENYTOIN [Concomitant]
     Indication: EPILEPSY
  18. TOPIRAMATE [Concomitant]
     Indication: EPILEPSY
  19. TRIMETHADIONE [Concomitant]
     Indication: EPILEPSY
  20. VALPROATE [Concomitant]
     Indication: EPILEPSY

REACTIONS (7)
  - Prolonged labour [Recovered/Resolved]
  - Beta haemolytic streptococcal infection [Unknown]
  - Fatigue [Recovering/Resolving]
  - Tension headache [Not Recovered/Not Resolved]
  - Dizziness [Not Recovered/Not Resolved]
  - Exposure during pregnancy [Recovered/Resolved]
  - Breast feeding [Recovered/Resolved]
